FAERS Safety Report 21326653 (Version 1)
Quarter: 2022Q3

REPORT INFORMATION
  Report Type: Spontaneous
  Country: AU (occurrence: AU)
  Receive Date: 20220913
  Receipt Date: 20220913
  Transmission Date: 20221027
  Serious: Yes (Life-Threatening, Hospitalization, Other)
  Sender: FDA-Public Use
  Company Number: AU-SA-SAC20220909000328

PATIENT
  Age: 79 Year

DRUGS (1)
  1. LIBTAYO [Suspect]
     Active Substance: CEMIPLIMAB-RWLC
     Indication: Squamous cell carcinoma
     Dosage: 350 MG
     Route: 041
     Dates: start: 20220622

REACTIONS (1)
  - Diabetic ketoacidosis [Recovered/Resolved with Sequelae]
